FAERS Safety Report 9796616 (Version 2)
Quarter: 2014Q1

REPORT INFORMATION
  Report Type: Spontaneous
  Country: DE (occurrence: DE)
  Receive Date: 20140103
  Receipt Date: 20140122
  Transmission Date: 20141002
  Serious: Yes (Hospitalization)
  Sender: FDA-Public Use
  Company Number: DE-ABBVIE-14P-062-1185958-00

PATIENT
  Age: 28 Year
  Sex: Female

DRUGS (5)
  1. VALPROATE SODIUM [Suspect]
     Indication: EPILEPSY
  2. PHENYTOIN [Suspect]
     Indication: EPILEPSY
  3. ETHOSUXIMIDE [Suspect]
     Indication: EPILEPSY
  4. NITRAZEPAM [Concomitant]
     Indication: PRODUCT USED FOR UNKNOWN INDICATION
  5. CYCLOBARBITAL CALCIUM/PROTHIPENDYL HYDROCHLORIDE [Concomitant]
     Indication: PRODUCT USED FOR UNKNOWN INDICATION

REACTIONS (9)
  - Nicotinic acid deficiency [Recovering/Resolving]
  - Diarrhoea [Unknown]
  - Dermatitis bullous [Unknown]
  - Dermatitis [Unknown]
  - Irritability [Unknown]
  - Gait disturbance [Unknown]
  - Papule [Unknown]
  - Erythema [Unknown]
  - Atrophic glossitis [Unknown]
